FAERS Safety Report 6060156-4 (Version None)
Quarter: 2009Q1

REPORT INFORMATION
  Report Type: 
  Country: None (occurrence: None)
  Receive Date: 20090128
  Receipt Date: 20090114
  Transmission Date: 20090719
  Serious: Yes (Hospitalization)
  Sender: FDA-Public Use
  Company Number: 107#08#2009-00160

PATIENT
  Age: 53 Year
  Sex: Female

DRUGS (12)
  1. FLECAINIDE ACETATE [Suspect]
     Indication: ATRIAL FIBRILLATION
     Dosage: 50 MG TWICE DAILY, ORAL; 100 MG TWICE DAILY, ORAL
     Route: 048
  2. DILTIAZEM (DILTIAZEM, DILTIAZEM HYDROCHLORIDE) [Concomitant]
  3. CLOPIDOGREL [Concomitant]
  4. GLICLAZIDE (GLICLAZIDE) [Concomitant]
  5. METOPROLOL TARTRATE [Concomitant]
  6. RAMIPRIL [Concomitant]
  7. ATORVASTATIN CALCIUM [Concomitant]
  8. RIFAMPICIN [Concomitant]
  9. ETHAMBUTOL HCL [Concomitant]
  10. PYRAZINAMIDE [Concomitant]
  11. PYRIDOXINE (VITAMIN B6) [Concomitant]
  12. ISONIAZID [Concomitant]

REACTIONS (7)
  - ASCITES [None]
  - ATRIAL FIBRILLATION [None]
  - CARDIOACTIVE DRUG LEVEL INCREASED [None]
  - CONDITION AGGRAVATED [None]
  - DRUG TOXICITY [None]
  - METABOLIC ENCEPHALOPATHY [None]
  - PERITONEAL TUBERCULOSIS [None]
